FAERS Safety Report 20144863 (Version 1)
Quarter: 2021Q4

REPORT INFORMATION
  Report Type: Spontaneous
  Country: US (occurrence: None)
  Receive Date: 20211202
  Receipt Date: 20211202
  Transmission Date: 20220303
  Serious: No
  Sender: FDA-Public Use
  Company Number: None

PATIENT
  Age: 59 Year
  Sex: Female
  Weight: 68.4 kg

DRUGS (4)
  1. BUPROPION [Suspect]
     Active Substance: BUPROPION
     Indication: Depression
     Dosage: OTHER QUANTITY : 1 CAPSULE(S);?
     Route: 048
     Dates: start: 20211111, end: 20211129
  2. BUPROPION [Suspect]
     Active Substance: BUPROPION
     Indication: Anxiety
  3. BUPROPION [Suspect]
     Active Substance: BUPROPION
     Indication: Pain
  4. BUPROPION [Suspect]
     Active Substance: BUPROPION
     Indication: Seasonal affective disorder

REACTIONS (3)
  - Diarrhoea [None]
  - Flatulence [None]
  - Nausea [None]
